FAERS Safety Report 7150101-2 (Version None)
Quarter: 2010Q4

REPORT INFORMATION
  Report Type: 
  Country: None (occurrence: None)
  Receive Date: 20101210
  Receipt Date: 20101207
  Transmission Date: 20110411
  Serious: Yes (Hospitalization, Other)
  Sender: FDA-Public Use
  Company Number: ES-PAR PHARMACEUTICAL, INC-2010SCPR000401

PATIENT

DRUGS (6)
  1. IBUPROFEN [Suspect]
     Indication: ASTHENIA
     Dosage: UNK
     Route: 065
  2. IBUPROFEN [Suspect]
     Indication: PARAESTHESIA
  3. AMOXICILLIN AND CLAVULANATE POTASSIUM [Concomitant]
     Indication: ASTHENIA
     Dosage: UNK
     Route: 065
  4. AMOXICILLIN AND CLAVULANATE POTASSIUM [Concomitant]
     Indication: PARAESTHESIA
  5. FUROSEMIDE [Concomitant]
     Indication: OEDEMA PERIPHERAL
     Dosage: 40 MG, UNKNOWN
     Route: 065
  6. ANTIBIOTICS [Concomitant]
     Dosage: UNK
     Route: 065

REACTIONS (5)
  - ASTHENIA [None]
  - GUILLAIN-BARRE SYNDROME [None]
  - HYPERKALAEMIA [None]
  - PARAESTHESIA [None]
  - RENAL FAILURE ACUTE [None]
